FAERS Safety Report 6864225-8 (Version None)
Quarter: 2010Q3

REPORT INFORMATION
  Report Type: 
  Country: None (occurrence: None)
  Receive Date: 20100721
  Receipt Date: 20080317
  Transmission Date: 20110219
  Serious: No
  Sender: FDA-Public Use
  Company Number: US-PFIZER INC-2008024986

PATIENT
  Sex: Female
  Weight: 63.636 kg

DRUGS (3)
  1. CHANTIX [Suspect]
     Indication: SMOKING CESSATION THERAPY
     Route: 048
     Dates: start: 20070501, end: 20070701
  2. LEXAPRO [Concomitant]
     Route: 048
  3. SYNTHROID [Concomitant]
     Route: 048

REACTIONS (7)
  - ANXIETY [None]
  - CHILLS [None]
  - DEPRESSION [None]
  - DIZZINESS [None]
  - FEELING COLD [None]
  - HEADACHE [None]
  - NAUSEA [None]
